FAERS Safety Report 23518635 (Version 1)
Quarter: 2024Q1

REPORT INFORMATION
  Report Type: Spontaneous
  Country: CN (occurrence: CN)
  Receive Date: 20240213
  Receipt Date: 20240213
  Transmission Date: 20240410
  Serious: Yes (Hospitalization, Other)
  Sender: FDA-Public Use
  Company Number: CN-PFIZER INC-PV202400019310

PATIENT
  Age: 50 Year
  Sex: Female
  Weight: 71 kg

DRUGS (1)
  1. CYTARABINE [Suspect]
     Active Substance: CYTARABINE
     Indication: Acute leukaemia
     Dosage: 0.1 G, 1X/DAY
     Route: 058
     Dates: start: 20240102, end: 20240105

REACTIONS (7)
  - Myelosuppression [Recovering/Resolving]
  - Infection [Recovering/Resolving]
  - Pyrexia [Recovered/Resolved]
  - Cough [Unknown]
  - Productive cough [Unknown]
  - Pneumonia [Unknown]
  - Hyperpyrexia [Recovered/Resolved]

NARRATIVE: CASE EVENT DATE: 20240121
